FAERS Safety Report 9804524 (Version 1)
Quarter: 2014Q1

REPORT INFORMATION
  Report Type: Other
  Country: DK (occurrence: US)
  Receive Date: 20140108
  Receipt Date: 20140108
  Transmission Date: 20141002
  Serious: Yes (Hospitalization, Other)
  Sender: FDA-Public Use
  Company Number: US-FRI-1000052681

PATIENT
  Age: 57 Year
  Sex: Female

DRUGS (6)
  1. CITALOPRAM [Suspect]
  2. FUROSEMIDE [Concomitant]
  3. METOPROLOL TARTRATE [Concomitant]
  4. ASPIRIN [Concomitant]
     Indication: PRURITUS
     Dosage: 81 MG
  5. DIPHENHYDRAMINE [Concomitant]
  6. MULTIVITAMINS [Concomitant]

REACTIONS (2)
  - Pemphigus [Unknown]
  - Arthralgia [Unknown]
